FAERS Safety Report 9709031 (Version 1)
Quarter: 2013Q4

REPORT INFORMATION
  Report Type: Spontaneous
  Country: JP (occurrence: JP)
  Receive Date: 20131125
  Receipt Date: 20131125
  Transmission Date: 20140711
  Serious: Yes (Death, Other)
  Sender: FDA-Public Use
  Company Number: PHHY2013JP132654

PATIENT
  Age: 51 Year
  Sex: Male

DRUGS (9)
  1. FLUDARABINE [Suspect]
     Indication: CHEMOTHERAPY
  2. DOXORUBICIN [Suspect]
     Indication: CHEMOTHERAPY
  3. VINCRISTINE [Suspect]
     Indication: CHEMOTHERAPY
  4. PREDNISOLONE [Suspect]
     Indication: CHEMOTHERAPY
  5. MITOXANTRONE [Suspect]
     Indication: CHEMOTHERAPY
  6. DEXAMETHASONE [Suspect]
     Indication: CHEMOTHERAPY
  7. CYCLOPHOSPHAMIDE [Suspect]
     Indication: CHEMOTHERAPY
  8. RITUXIMAB [Suspect]
     Indication: CHEMOTHERAPY
  9. BENDAMUSTINE [Suspect]
     Dosage: 120 MG/M2/DAY

REACTIONS (8)
  - Multi-organ failure [Fatal]
  - Cytomegalovirus infection [Fatal]
  - Histiocytosis haematophagic [Fatal]
  - CD4 lymphocytes decreased [Fatal]
  - Cardiac arrest [Unknown]
  - Renal failure acute [Unknown]
  - B-cell lymphoma [Unknown]
  - Disease recurrence [Unknown]
